FAERS Safety Report 16001163 (Version 1)
Quarter: 2019Q1

REPORT INFORMATION
  Report Type: Spontaneous
  Country: GB (occurrence: FR)
  Receive Date: 20190225
  Receipt Date: 20190225
  Transmission Date: 20190418
  Serious: Yes (Other)
  Sender: FDA-Public Use
  Company Number: FR-FRESENIUS KABI-FK201901875

PATIENT
  Sex: Male

DRUGS (2)
  1. CASPOFUNGIN (MANUFACTURER UNKNOWN) [Suspect]
     Active Substance: CASPOFUNGIN
     Indication: SYSTEMIC CANDIDA
     Dosage: 7 DAYS
     Route: 065
     Dates: start: 20190114, end: 20190121
  2. SODIUM LACTATE/SODIUM BICARBONATE/SODIUM CHLORIDE/MAGNESIUM CHLORIDE/CALCIUM CHLORIDE [Suspect]
     Active Substance: CALCIUM\MAGNESIUM\SODIUM BICARBONATE\SODIUM CHLORIDE\SODIUM LACTATE
     Indication: HAEMODIALYSIS
     Dates: start: 201901

REACTIONS (4)
  - Systemic candida [Recovering/Resolving]
  - Pneumonia pneumococcal [Recovering/Resolving]
  - Septic shock [Recovering/Resolving]
  - Pneumonia bacterial [Recovering/Resolving]

NARRATIVE: CASE EVENT DATE: 20190109
